FAERS Safety Report 9387073 (Version 1)
Quarter: 2013Q3

REPORT INFORMATION
  Report Type: Spontaneous
  Country: AU (occurrence: AU)
  Receive Date: 20130708
  Receipt Date: 20130711
  Transmission Date: 20140515
  Serious: Yes (Death)
  Sender: FDA-Public Use
  Company Number: PHHY2013AU068846

PATIENT
  Age: 35 Year
  Sex: Male

DRUGS (6)
  1. SANDOMIGRAN [Suspect]
  2. QUETIAPINE [Suspect]
  3. EFEXOR XR [Suspect]
     Indication: DEPRESSION
     Dosage: 450 MG, DAILY
     Route: 048
  4. METHADONE HYDROCHLORIDE [Suspect]
  5. PARACETAMOL [Concomitant]
  6. ZYRTEC [Concomitant]

REACTIONS (4)
  - Cardio-respiratory arrest [Fatal]
  - Cheyne-Stokes respiration [Fatal]
  - Convulsion [Fatal]
  - Headache [Fatal]
